FAERS Safety Report 23264425 (Version 2)
Quarter: 2023Q4

REPORT INFORMATION
  Report Type: Spontaneous
  Country: DE (occurrence: DE)
  Receive Date: 20231205
  Receipt Date: 20231226
  Transmission Date: 20240110
  Serious: Yes (Other)
  Sender: FDA-Public Use
  Company Number: DE-BRISTOL-MYERS SQUIBB COMPANY-2023-034897

PATIENT
  Age: 74 Year
  Sex: Female
  Weight: 50 kg

DRUGS (17)
  1. CARBIMAZOLE [Suspect]
     Active Substance: CARBIMAZOLE
     Indication: Product used for unknown indication
     Dosage: UNK
     Route: 065
     Dates: start: 20230517
  2. CARBOPLATIN [Suspect]
     Active Substance: CARBOPLATIN
     Indication: Non-small cell lung cancer
     Dosage: 450 MG, Q3W (EXTERNAL)
     Route: 042
     Dates: start: 20230126, end: 20230216
  3. OPDIVO [Suspect]
     Active Substance: NIVOLUMAB
     Indication: Non-small cell lung cancer
     Dosage: 3QW (EVERY 3 WEEK)
     Route: 042
     Dates: start: 20230126
  4. PACLITAXEL [Suspect]
     Active Substance: PACLITAXEL
     Indication: Non-small cell lung cancer
     Dosage: 280 MG (EXTERNAL)
     Route: 065
     Dates: start: 20230126
  5. YERVOY [Suspect]
     Active Substance: IPILIMUMAB
     Indication: Non-small cell lung cancer
     Dosage: 6QW (EVERY 6 WEEK)
     Route: 042
     Dates: start: 20230126
  6. ASPIRIN [Concomitant]
     Active Substance: ASPIRIN
     Indication: Product used for unknown indication
     Dosage: UNK
     Route: 065
  7. AKYNZEO [Concomitant]
     Indication: Product used for unknown indication
     Dosage: UNK (PREMEDICATION GIVEN TO EVERY CYCLE)
     Route: 065
     Dates: start: 20230126, end: 20230216
  8. CLEMASTINE [Concomitant]
     Active Substance: CLEMASTINE
     Indication: Product used for unknown indication
     Dosage: UNK, PREMEDICATION GIVEN TO EVERY CYCLE
     Route: 065
     Dates: start: 20230126, end: 20230216
  9. CLEMASTINE [Concomitant]
     Active Substance: CLEMASTINE
     Dosage: PREMEDICATION GIVEN TO EVERY CYCLEUNK
     Route: 065
     Dates: start: 20230126, end: 20230216
  10. CLEMASTINE [Concomitant]
     Active Substance: CLEMASTINE
     Dosage: PREMEDICATION GIVEN TO EVERY CYCLEUNK
     Route: 065
     Dates: start: 20230126, end: 20230216
  11. CLEMASTINE [Concomitant]
     Active Substance: CLEMASTINE
     Dosage: PREMEDICATION GIVEN TO EVERY CYCLEUNK
     Route: 065
     Dates: start: 20230126, end: 20230216
  12. CLEMASTINE [Concomitant]
     Active Substance: CLEMASTINE
     Dosage: PREMEDICATION GIVEN TO EVERY CYCLEUNK
     Route: 065
     Dates: start: 20230126, end: 20230216
  13. CLEMASTINE [Concomitant]
     Active Substance: CLEMASTINE
     Indication: Prophylaxis
  14. DEXAMETHASONE [Concomitant]
     Active Substance: DEXAMETHASONE
     Indication: Product used for unknown indication
     Dosage: UNK (PREMEDICATION GIVEN TO EVERY CYCLE)
     Route: 065
     Dates: start: 20230126, end: 20230216
  15. IPRATROPIUM BROMIDE [Concomitant]
     Active Substance: IPRATROPIUM BROMIDE\IPRATROPIUM BROMIDE ANHYDROUS
     Indication: Product used for unknown indication
     Dosage: UNK
     Route: 065
     Dates: start: 20230101
  16. RAMIPRIL [Concomitant]
     Active Substance: RAMIPRIL
     Indication: Product used for unknown indication
     Dosage: UNK
     Route: 065
  17. RANITIDINE [Concomitant]
     Active Substance: RANITIDINE
     Indication: Product used for unknown indication
     Dosage: UNK
     Route: 065
     Dates: start: 20230126, end: 20230216

REACTIONS (4)
  - Immune-mediated hyperthyroidism [Not Recovered/Not Resolved]
  - Peripheral sensory neuropathy [Recovering/Resolving]
  - C-reactive protein increased [Recovered/Resolved]
  - Nausea [Recovering/Resolving]

NARRATIVE: CASE EVENT DATE: 20230224
